FAERS Safety Report 24984633 (Version 1)
Quarter: 2025Q1

REPORT INFORMATION
  Report Type: Report from Study
  Country: CA (occurrence: CA)
  Receive Date: 20250219
  Receipt Date: 20250219
  Transmission Date: 20250409
  Serious: Yes (Other)
  Sender: TAKEDA
  Company Number: CA-TAKEDA-2025TUS016619

PATIENT
  Sex: Female

DRUGS (6)
  1. VEDOLIZUMAB [Suspect]
     Active Substance: VEDOLIZUMAB
     Indication: Crohn^s disease
  2. PREDNISONE [Concomitant]
     Active Substance: PREDNISONE
  3. Salofalk [Concomitant]
  4. PLAVIX [Concomitant]
     Active Substance: CLOPIDOGREL BISULFATE
  5. ATORVASTATIN [Concomitant]
     Active Substance: ATORVASTATIN
  6. ANASTROZOLE [Concomitant]
     Active Substance: ANASTROZOLE

REACTIONS (1)
  - Crohn^s disease [Not Recovered/Not Resolved]
